FAERS Safety Report 23366826 (Version 1)
Quarter: 2024Q1

REPORT INFORMATION
  Report Type: Spontaneous
  Country: ES (occurrence: ES)
  Receive Date: 20240104
  Receipt Date: 20240104
  Transmission Date: 20240410
  Serious: Yes (Hospitalization)
  Sender: FDA-Public Use
  Company Number: None

PATIENT
  Age: 75 Year
  Sex: Male

DRUGS (2)
  1. BOSUTINIB [Suspect]
     Active Substance: BOSUTINIB
     Indication: Chronic myeloid leukaemia
     Dosage: 300 MG, DAILY
     Route: 048
     Dates: start: 20200731, end: 20211020
  2. BOSUTINIB [Suspect]
     Active Substance: BOSUTINIB
     Dosage: UNK

REACTIONS (3)
  - Generalised oedema [Recovered/Resolved]
  - Pleural effusion [Recovered/Resolved]
  - Polyserositis [Recovered/Resolved]

NARRATIVE: CASE EVENT DATE: 20201020
